FAERS Safety Report 9179647 (Version 1)
Quarter: 2012Q4

REPORT INFORMATION
  Report Type: 
  Country: US (occurrence: US)
  Receive Date: 20121029
  Receipt Date: 20121029
  Transmission Date: 20130627
  Serious: Yes (Death, Hospitalization)
  Sender: FDA-Public Use
  Company Number: US-TEVA-366746USA

PATIENT
  Age: 81 None
  Sex: Male

DRUGS (1)
  1. COPAXONE [Suspect]
     Indication: MULTIPLE SCLEROSIS
     Dates: start: 20050728, end: 20121022

REACTIONS (6)
  - Death [Fatal]
  - Chest discomfort [Unknown]
  - Anxiety [Unknown]
  - Palpitations [Unknown]
  - Myocardial infarction [Unknown]
  - Cerebrovascular accident [Unknown]
